FAERS Safety Report 6029690-7 (Version None)
Quarter: 2009Q1

REPORT INFORMATION
  Report Type: 
  Country: None (occurrence: None)
  Receive Date: 20090107
  Receipt Date: 20081230
  Transmission Date: 20090719
  Serious: Yes (Hospitalization, Disabling)
  Sender: FDA-Public Use
  Company Number: PHHY2008AT24240

PATIENT
  Sex: Male
  Weight: 120 kg

DRUGS (4)
  1. TASIGNA [Suspect]
     Indication: CHRONIC MYELOID LEUKAEMIA
     Dosage: 800 MG, QD
     Dates: start: 20080314, end: 20080715
  2. INSULIN [Concomitant]
     Dosage: MT30 20-0-20 I.U
     Route: 058
  3. NOMEXOR [Concomitant]
     Dosage: 2.5 MG
     Route: 048
  4. BLOPRESS [Concomitant]
     Dosage: 16 MG
     Route: 048

REACTIONS (14)
  - ALANINE AMINOTRANSFERASE INCREASED [None]
  - ANAEMIA [None]
  - ASPARTATE AMINOTRANSFERASE INCREASED [None]
  - BLOOD PRODUCT TRANSFUSION [None]
  - HAEMOGLOBIN DECREASED [None]
  - HAEMORRHAGE [None]
  - MULTI-ORGAN FAILURE [None]
  - NEUTROPENIA [None]
  - NEUTROPHIL COUNT DECREASED [None]
  - PANCYTOPENIA [None]
  - RENAL IMPAIRMENT [None]
  - SERUM FERRITIN INCREASED [None]
  - THROMBOCYTHAEMIA [None]
  - THROMBOCYTOPENIA [None]
